FAERS Safety Report 22021690 (Version 1)
Quarter: 2023Q1

REPORT INFORMATION
  Report Type: Spontaneous
  Country: US (occurrence: None)
  Receive Date: 20230219
  Receipt Date: 20230219
  Transmission Date: 20230417
  Serious: Yes (Disabling)
  Sender: FDA-Public Use
  Company Number: None

PATIENT
  Age: 43 Year
  Sex: Female
  Weight: 172.8 kg

DRUGS (17)
  1. PHENTERMINE HYDROCHLORIDE [Suspect]
     Active Substance: PHENTERMINE HYDROCHLORIDE
     Indication: Obesity
     Dosage: OTHER QUANTITY : 30 CAPSULE(S);?FREQUENCY : DAILY;?
     Route: 048
     Dates: start: 20230128, end: 20230219
  2. LEVOTHYROXINE [Concomitant]
     Active Substance: LEVOTHYROXINE
  3. GABAPENTIN [Concomitant]
     Active Substance: GABAPENTIN
  4. DICYCLOMINE [Concomitant]
     Active Substance: DICYCLOMINE HYDROCHLORIDE
  5. PREDNISONE [Concomitant]
     Active Substance: PREDNISONE
  6. CELEBREX [Concomitant]
     Active Substance: CELECOXIB
  7. HYDROXYCHLOROQUINE [Concomitant]
     Active Substance: HYDROXYCHLOROQUINE
  8. DOXEPIN [Concomitant]
     Active Substance: DOXEPIN
  9. MILI [Concomitant]
     Active Substance: ETHINYL ESTRADIOL\NORGESTIMATE
  10. ONDANSETRON [Concomitant]
     Active Substance: ONDANSETRON
  11. COLESTIPOL [Concomitant]
     Active Substance: COLESTIPOL
  12. VITAMIN D3 [Concomitant]
     Active Substance: CHOLECALCIFEROL
  13. IRON [Concomitant]
     Active Substance: IRON
  14. VITAMIN B12 [Concomitant]
     Active Substance: CYANOCOBALAMIN
  15. FOLATE SODIUM [Concomitant]
     Active Substance: FOLATE SODIUM
  16. IMODIUM [Concomitant]
     Active Substance: LOPERAMIDE HYDROCHLORIDE
  17. LIDOCAINE [Concomitant]
     Active Substance: LIDOCAINE

REACTIONS (5)
  - Heavy menstrual bleeding [None]
  - Dysmenorrhoea [None]
  - Nausea [None]
  - Therapy interrupted [None]
  - Menstruation irregular [None]

NARRATIVE: CASE EVENT DATE: 20230219
